FAERS Safety Report 23133847 (Version 1)
Quarter: 2023Q4

REPORT INFORMATION
  Report Type: Spontaneous
  Country: US (occurrence: US)
  Receive Date: 20231101
  Receipt Date: 20231101
  Transmission Date: 20240109
  Serious: No
  Sender: FDA-Public Use
  Company Number: US-BoehringerIngelheim-2023-BI-270237

PATIENT

DRUGS (1)
  1. SPEVIGO [Suspect]
     Active Substance: SPESOLIMAB-SBZO
     Indication: Pustular psoriasis

REACTIONS (1)
  - Erythema [Unknown]
